FAERS Safety Report 17560281 (Version 1)
Quarter: 2020Q1

REPORT INFORMATION
  Report Type: Spontaneous
  Country: US (occurrence: US)
  Receive Date: 20200319
  Receipt Date: 20200319
  Transmission Date: 20200409
  Serious: No
  Sender: FDA-Public Use
  Company Number: US-ASTRAZENECA-2020SE28449

PATIENT
  Age: 21981 Day
  Sex: Male
  Weight: 136.1 kg

DRUGS (6)
  1. GLIPIZIDE. [Concomitant]
     Active Substance: GLIPIZIDE
     Indication: DIABETES MELLITUS
     Route: 048
  2. AMLODIPINE BENAZ [Concomitant]
     Indication: BLOOD PRESSURE MEASUREMENT
     Dosage: 10 -40 MGDAILY
     Route: 048
  3. METOPROLOL SUCCINATE. [Concomitant]
     Active Substance: METOPROLOL SUCCINATE
     Indication: BLOOD PRESSURE MEASUREMENT
     Route: 048
  4. BYDUREON BCISE [Suspect]
     Active Substance: EXENATIDE
     Indication: INSULIN-REQUIRING TYPE 2 DIABETES MELLITUS
     Route: 058
  5. METFORMIN [Concomitant]
     Active Substance: METFORMIN HYDROCHLORIDE
     Indication: DIABETES MELLITUS
     Route: 048
  6. CLONIDINE. [Concomitant]
     Active Substance: CLONIDINE
     Indication: BLOOD PRESSURE MEASUREMENT
     Route: 048

REACTIONS (11)
  - Blood glucose fluctuation [Unknown]
  - Product dose omission [Unknown]
  - Asthenia [Recovered/Resolved]
  - Incorrect disposal of product [Unknown]
  - Injection site haemorrhage [Recovered/Resolved]
  - Injection site indentation [Recovered/Resolved]
  - Blood glucose increased [Unknown]
  - Needle issue [Unknown]
  - Dizziness [Recovered/Resolved]
  - Drug delivery system malfunction [Unknown]
  - Vascular injury [Unknown]

NARRATIVE: CASE EVENT DATE: 20200220
